FAERS Safety Report 6710208-8 (Version None)
Quarter: 2010Q2

REPORT INFORMATION
  Report Type: 
  Country: None (occurrence: None)
  Receive Date: 20100430
  Receipt Date: 20100419
  Transmission Date: 20101027
  Serious: Yes (Hospitalization, Other)
  Sender: FDA-Public Use
  Company Number: THQ2010A01003

PATIENT
  Age: 80 Year
  Sex: Female

DRUGS (3)
  1. ACTOS [Suspect]
     Indication: DIABETES MELLITUS
     Dosage: 30 MG (30 MG, 1 IN 1 D), PER ORAL
     Route: 048
  2. ANTIBIOTICS [Concomitant]
  3. METFORMIN HYDROCHLORIDE [Concomitant]

REACTIONS (2)
  - FALL [None]
  - HYPOGLYCAEMIA [None]
